FAERS Safety Report 20906850 (Version 1)
Quarter: 2022Q2

REPORT INFORMATION
  Report Type: Spontaneous
  Country: US (occurrence: US)
  Receive Date: 20220602
  Receipt Date: 20220602
  Transmission Date: 20220721
  Serious: Yes (Hospitalization, Other)
  Sender: FDA-Public Use
  Company Number: US-drreddys-SPO/USA/22/0150644

PATIENT
  Age: 89 Year
  Sex: Female

DRUGS (3)
  1. OLANZAPINE [Interacting]
     Active Substance: OLANZAPINE
     Indication: Aggression
     Route: 048
  2. DROPERIDOL [Interacting]
     Active Substance: DROPERIDOL
     Indication: Aggression
  3. DROPERIDOL [Interacting]
     Active Substance: DROPERIDOL

REACTIONS (3)
  - Extrapyramidal disorder [Recovering/Resolving]
  - Drug interaction [Recovering/Resolving]
  - Ataxia [Recovering/Resolving]
